FAERS Safety Report 7234467-0 (Version None)
Quarter: 2011Q1

REPORT INFORMATION
  Report Type: 
  Country: None (occurrence: None)
  Receive Date: 20110119
  Receipt Date: 20110106
  Transmission Date: 20110831
  Serious: Yes (Life-Threatening, Hospitalization)
  Sender: FDA-Public Use
  Company Number: IT-PURDUE-GBR-2011-0007568

PATIENT
  Age: 33 Year
  Sex: Male

DRUGS (3)
  1. GABAPENTIN [Concomitant]
     Dosage: 300 MG, DAILY
  2. NON-PMN BUPRENORPHINE [Suspect]
     Indication: DETOXIFICATION
     Dosage: 20 MG, DAILY
     Route: 060
  3. CLONAZEPAM [Concomitant]
     Dosage: 2 MG, DAILY

REACTIONS (5)
  - RENAL FAILURE [None]
  - INFLUENZA LIKE ILLNESS [None]
  - HEPATIC ENCEPHALOPATHY [None]
  - ANURIA [None]
  - HEPATITIS [None]
